FAERS Safety Report 8395158-6 (Version None)
Quarter: 2012Q2

REPORT INFORMATION
  Report Type: 
  Country: None (occurrence: None)
  Receive Date: 20120530
  Receipt Date: 20120525
  Transmission Date: 20120825
  Serious: No
  Sender: FDA-Public Use
  Company Number: US-PFIZER INC-2012127284

PATIENT
  Sex: Male
  Weight: 77.1 kg

DRUGS (3)
  1. VALTREX [Concomitant]
     Indication: HERPES ZOSTER
     Dosage: UNK
  2. LYRICA [Suspect]
     Indication: HERPES ZOSTER
     Dosage: 150 MG, 1X/DAY
     Dates: start: 20120501, end: 20120524
  3. VICODIN [Concomitant]
     Indication: PAIN
     Dosage: 10 MG, 3X/DAY

REACTIONS (1)
  - DYSPHEMIA [None]
